FAERS Safety Report 19156541 (Version 4)
Quarter: 2021Q3

REPORT INFORMATION
  Report Type: Spontaneous
  Country: BR (occurrence: BR)
  Receive Date: 20210420
  Receipt Date: 20210714
  Transmission Date: 20211014
  Serious: Yes (Other)
  Sender: FDA-Public Use
  Company Number: BR-AUROBINDO-AUR-APL-2021-016162

PATIENT
  Age: 26 Year
  Sex: Female
  Weight: 87.9 kg

DRUGS (2)
  1. TRAMADOL. [Concomitant]
     Active Substance: TRAMADOL
     Indication: ANALGESIC THERAPY
     Dosage: 50MG/ML?2ML (10?WEEK AND 2?DAY)
     Route: 042
     Dates: start: 20210407, end: 20210408
  2. CEFUROXIME. [Suspect]
     Active Substance: CEFUROXIME
     Indication: PYELONEPHRITIS
     Dosage: 750 MILLIGRAM (8/8H) AT (10?WEEK AND 2?DAY)
     Route: 042
     Dates: start: 20210407, end: 20210407

REACTIONS (4)
  - Laryngeal discomfort [Recovered/Resolved]
  - Maternal exposure during pregnancy [Unknown]
  - Cough [Recovered/Resolved]
  - Hyperhidrosis [Recovered/Resolved]

NARRATIVE: CASE EVENT DATE: 20210407
